FAERS Safety Report 8585747-8 (Version None)
Quarter: 2012Q3

REPORT INFORMATION
  Report Type: 
  Country: None (occurrence: None)
  Receive Date: 20120810
  Receipt Date: 20120711
  Transmission Date: 20120928
  Serious: Yes (Death)
  Sender: FDA-Public Use
  Company Number: JP-009507513-1207JPN000100

PATIENT

DRUGS (5)
  1. REBETOL [Suspect]
     Dosage: 800 MG, QD
     Route: 048
     Dates: start: 20120501, end: 20120601
  2. PEGINTRON POWDER FOR INJECTION 100MICROG [Suspect]
     Dosage: 120 UNK, QW
     Route: 058
     Dates: start: 20120523, end: 20120523
  3. REBETOL [Suspect]
     Dosage: 1000 MG, ONCE
     Route: 048
     Dates: start: 20120523, end: 20120601
  4. PEGINTRON POWDER FOR INJECTION 100MICROG [Suspect]
     Dosage: 80 UNK, QW
     Route: 058
     Dates: start: 20120529, end: 20120605
  5. PEGINTRON POWDER FOR INJECTION 100MICROG [Suspect]
     Dosage: 100 MICROGRAM, QW
     Route: 058
     Dates: start: 20120501, end: 20120601

REACTIONS (4)
  - AFFECT LABILITY [None]
  - CONFUSIONAL STATE [None]
  - COMPLETED SUICIDE [None]
  - PLATELET COUNT DECREASED [None]
